FAERS Safety Report 18128965 (Version 4)
Quarter: 2020Q4

REPORT INFORMATION
  Report Type: Spontaneous
  Country: US (occurrence: US)
  Receive Date: 20200810
  Receipt Date: 20201007
  Transmission Date: 20210113
  Serious: No
  Sender: FDA-Public Use
  Company Number: US-PFIZER INC-2020295794

PATIENT
  Age: 68 Year
  Sex: Female
  Weight: 90.72 kg

DRUGS (3)
  1. LYRICA CR [Suspect]
     Active Substance: PREGABALIN
     Indication: TYPE 2 DIABETES MELLITUS
     Dosage: 165 MG, 1X/DAY [1 TAB(S) ONCE A DAY (IN THE EVENING) 90 DAYS]
     Route: 048
     Dates: start: 20200805
  2. LYRICA CR [Suspect]
     Active Substance: PREGABALIN
     Indication: HYPERGLYCAEMIA
     Dosage: UNK (TAKEN TWO SO FAR)
  3. LYRICA CR [Suspect]
     Active Substance: PREGABALIN
     Indication: NEUROPATHY PERIPHERAL

REACTIONS (3)
  - Drug ineffective [Unknown]
  - Nausea [Unknown]
  - Malaise [Unknown]

NARRATIVE: CASE EVENT DATE: 20200805
